FAERS Safety Report 8080567-5 (Version None)
Quarter: 2012Q1

REPORT INFORMATION
  Report Type: 
  Country: None (occurrence: None)
  Receive Date: 20120130
  Receipt Date: 20120116
  Transmission Date: 20120608
  Serious: Yes (Other)
  Sender: FDA-Public Use
  Company Number: CA-JNJFOC-20120111534

PATIENT
  Sex: Female
  Weight: 51 kg

DRUGS (5)
  1. FOLIC ACID [Concomitant]
     Route: 065
  2. VOLTAREN [Concomitant]
     Route: 065
  3. REMICADE [Suspect]
     Indication: JUVENILE ARTHRITIS
     Route: 042
  4. METHOTREXATE [Concomitant]
     Route: 065
  5. REACTINE [Concomitant]
     Dosage: AS NEEDED
     Route: 065

REACTIONS (2)
  - EYE PAIN [None]
  - VISION BLURRED [None]
